FAERS Safety Report 10890431 (Version 2)
Quarter: 2015Q2

REPORT INFORMATION
  Report Type: Spontaneous
  Country: DE (occurrence: DE)
  Receive Date: 20150305
  Receipt Date: 20150521
  Transmission Date: 20150821
  Serious: Yes (Hospitalization, Disabling, Other)
  Sender: FDA-Public Use
  Company Number: DE-SA-2015SA026535

PATIENT
  Age: 71 Year
  Sex: Female

DRUGS (10)
  1. MARCUMAR [Concomitant]
     Active Substance: PHENPROCOUMON
     Indication: ATRIAL FIBRILLATION
  2. LEVETIRACETAM. [Concomitant]
     Active Substance: LEVETIRACETAM
     Dosage: MORNING AND NIGHT
  3. FABRAZYME [Suspect]
     Active Substance: AGALSIDASE BETA
     Indication: FABRY^S DISEASE
     Dosage: EVERY 4 WEEKS
     Route: 042
  4. TORASEMID [Concomitant]
     Active Substance: TORSEMIDE
     Dosage: MORNING
  5. LANITOP [Concomitant]
     Active Substance: METILDIGOXIN
     Dosage: 1 EVERY MORINING, 2 SUNDAY MORNINGS
  6. SORTIS [Concomitant]
     Active Substance: ATORVASTATIN
     Dosage: AT NIGHT
  7. TOPAMAX [Concomitant]
     Active Substance: TOPIRAMATE
     Dosage: AT NIGHT
  8. BACLOFEN. [Concomitant]
     Active Substance: BACLOFEN
     Dosage: MORNING, AFTERNOON, NIGHT
  9. PANTOZOL [Concomitant]
     Active Substance: PANTOPRAZOLE SODIUM
     Dosage: IN THE MORNING
  10. TOPAMAX [Concomitant]
     Active Substance: TOPIRAMATE
     Dosage: MORNING

REACTIONS (13)
  - Gastrointestinal infection [Recovered/Resolved]
  - Somnolence [Unknown]
  - Abdominal distension [Recovering/Resolving]
  - General physical health deterioration [Unknown]
  - Diarrhoea [Recovered/Resolved]
  - Urinary retention [Recovering/Resolving]
  - Necrosis [Unknown]
  - Abdominal pain [Recovering/Resolving]
  - Blood creatinine increased [Recovered/Resolved]
  - Gastrointestinal sounds abnormal [Recovering/Resolving]
  - Hydronephrosis [Recovered/Resolved]
  - Acute kidney injury [Recovered/Resolved]
  - Pain [Unknown]

NARRATIVE: CASE EVENT DATE: 20150103
